FAERS Safety Report 26060327 (Version 1)
Quarter: 2025Q4

REPORT INFORMATION
  Report Type: Spontaneous
  Country: EU (occurrence: EU)
  Receive Date: 20251118
  Receipt Date: 20251118
  Transmission Date: 20260117
  Serious: Yes (Other)
  Sender: MYLAN
  Company Number: None

PATIENT
  Age: 15 Year
  Sex: Female
  Weight: 64 kg

DRUGS (20)
  1. ZOLOFT [Suspect]
     Active Substance: SERTRALINE HYDROCHLORIDE
     Indication: Product used for unknown indication
     Dosage: UNK, NOT SPECIFIED
  2. ZOLOFT [Suspect]
     Active Substance: SERTRALINE HYDROCHLORIDE
     Dosage: UNK, NOT SPECIFIED
     Route: 048
  3. ZOLOFT [Suspect]
     Active Substance: SERTRALINE HYDROCHLORIDE
     Dosage: UNK, NOT SPECIFIED
     Route: 048
  4. ZOLOFT [Suspect]
     Active Substance: SERTRALINE HYDROCHLORIDE
     Dosage: UNK, NOT SPECIFIED
  5. IMOVANE [Suspect]
     Active Substance: ZOPICLONE
     Indication: Insomnia
     Dosage: 15 MILLIGRAM, QD
     Dates: start: 20231221, end: 20240221
  6. IMOVANE [Suspect]
     Active Substance: ZOPICLONE
     Dosage: 15 MILLIGRAM, QD
     Route: 048
     Dates: start: 20231221, end: 20240221
  7. IMOVANE [Suspect]
     Active Substance: ZOPICLONE
     Dosage: 15 MILLIGRAM, QD
     Route: 048
     Dates: start: 20231221, end: 20240221
  8. IMOVANE [Suspect]
     Active Substance: ZOPICLONE
     Dosage: 15 MILLIGRAM, QD
     Dates: start: 20231221, end: 20240221
  9. ALBUTEROL [Suspect]
     Active Substance: ALBUTEROL
     Indication: Product used for unknown indication
     Dosage: UNK, NOT SPECIFIED
  10. ALBUTEROL [Suspect]
     Active Substance: ALBUTEROL
     Dosage: UNK, NOT SPECIFIED
     Route: 048
  11. ALBUTEROL [Suspect]
     Active Substance: ALBUTEROL
     Dosage: UNK, NOT SPECIFIED
     Route: 048
  12. ALBUTEROL [Suspect]
     Active Substance: ALBUTEROL
     Dosage: UNK, NOT SPECIFIED
  13. EBASTINE [Suspect]
     Active Substance: EBASTINE
     Indication: Product used for unknown indication
     Dosage: UNK, NOT SPECIFIED
  14. EBASTINE [Suspect]
     Active Substance: EBASTINE
     Dosage: UNK, NOT SPECIFIED
     Route: 048
  15. EBASTINE [Suspect]
     Active Substance: EBASTINE
     Dosage: UNK, NOT SPECIFIED
     Route: 048
  16. EBASTINE [Suspect]
     Active Substance: EBASTINE
     Dosage: UNK, NOT SPECIFIED
  17. CYAMEMAZINE [Suspect]
     Active Substance: CYAMEMAZINE
     Indication: Product used for unknown indication
     Dosage: UNK, NOT SPECIFIED
  18. CYAMEMAZINE [Suspect]
     Active Substance: CYAMEMAZINE
     Dosage: UNK, NOT SPECIFIED
     Route: 048
  19. CYAMEMAZINE [Suspect]
     Active Substance: CYAMEMAZINE
     Dosage: UNK, NOT SPECIFIED
     Route: 048
  20. CYAMEMAZINE [Suspect]
     Active Substance: CYAMEMAZINE
     Dosage: UNK, NOT SPECIFIED

REACTIONS (6)
  - Cognitive disorder [Not Recovered/Not Resolved]
  - Sleep disorder [Not Recovered/Not Resolved]
  - Limb discomfort [Not Recovered/Not Resolved]
  - Hallucination [Not Recovered/Not Resolved]
  - Dry mouth [Not Recovered/Not Resolved]
  - Withdrawal syndrome [Not Recovered/Not Resolved]

NARRATIVE: CASE EVENT DATE: 20231221
